FAERS Safety Report 4660962-4 (Version None)
Quarter: 2005Q2

REPORT INFORMATION
  Report Type: 
  Country: None (occurrence: None)
  Receive Date: 20050511
  Receipt Date: 20050502
  Transmission Date: 20051028
  Serious: Yes (Hospitalization, Disabling)
  Sender: FDA-Public Use
  Company Number: TPA2005A00511

PATIENT
  Age: 76 Year
  Sex: Female
  Weight: 81.1939 kg

DRUGS (9)
  1. ACTOS [Suspect]
     Indication: DIABETES MELLITUS NON-INSULIN-DEPENDENT
     Dosage: SEE IMAGE
     Route: 048
     Dates: start: 19990502, end: 20050415
  2. ACTOS [Suspect]
     Indication: DIABETES MELLITUS NON-INSULIN-DEPENDENT
     Dosage: SEE IMAGE
     Route: 048
     Dates: start: 20050415
  3. PROPRANOLOL [Concomitant]
  4. LASIX (FUROSEMIDE0 [Concomitant]
  5. BUMETANIDE [Concomitant]
  6. SYNTHROID [Concomitant]
  7. NEURONTIN [Concomitant]
  8. BENAZEPIL (BENAZEPRIL) [Concomitant]
  9. EVISTA [Concomitant]

REACTIONS (8)
  - COMPRESSION FRACTURE [None]
  - EAR INFECTION [None]
  - FRACTURE [None]
  - JOINT SWELLING [None]
  - MOBILITY DECREASED [None]
  - OEDEMA PERIPHERAL [None]
  - PNEUMONIA PRIMARY ATYPICAL [None]
  - RADIUS FRACTURE [None]
